FAERS Safety Report 13616037 (Version 1)
Quarter: 2017Q2

REPORT INFORMATION
  Report Type: Other
  Country: None (occurrence: US)
  Receive Date: 20170606
  Receipt Date: 20170606
  Transmission Date: 20170830
  Serious: No
  Sender: FDA-Public Use
  Company Number: US-AUROBINDO-AUR-APU-2016-14015

PATIENT

DRUGS (1)
  1. HYDROCODONE BITARTRATE AND ACETAMINOPHEN TABLETS USP 10 MG/325 MG [Suspect]
     Active Substance: ACETAMINOPHEN\HYDROCODONE BITARTRATE
     Indication: PRODUCT USED FOR UNKNOWN INDICATION
     Dosage: UNK

REACTIONS (7)
  - Inflammatory bowel disease [Unknown]
  - Constipation [Unknown]
  - Dizziness [Unknown]
  - Drug ineffective [Unknown]
  - Abdominal distension [Unknown]
  - Hyperhidrosis [Unknown]
  - Formication [None]
